FAERS Safety Report 7413591-3 (Version None)
Quarter: 2011Q2

REPORT INFORMATION
  Report Type: 
  Country: None (occurrence: None)
  Receive Date: 20110405
  Receipt Date: 20110323
  Transmission Date: 20111010
  Serious: Yes (Other)
  Sender: FDA-Public Use
  Company Number: 2011001381

PATIENT
  Age: 80 Year
  Sex: Female

DRUGS (2)
  1. TARCEVA [Suspect]
     Indication: LUNG NEOPLASM MALIGNANT
     Dosage: 150, 75  MG, QD, ORAL
     Route: 048
     Dates: start: 20110311, end: 20110316
  2. TARCEVA [Suspect]
     Indication: LUNG NEOPLASM MALIGNANT
     Dosage: 150, 75  MG, QD, ORAL
     Route: 048
     Dates: start: 20110301, end: 20110301

REACTIONS (3)
  - NAUSEA [None]
  - ABDOMINAL DISCOMFORT [None]
  - LOSS OF CONSCIOUSNESS [None]
